FAERS Safety Report 7927343-9 (Version None)
Quarter: 2011Q4

REPORT INFORMATION
  Report Type: 
  Country: None (occurrence: None)
  Receive Date: 20111118
  Receipt Date: 20111116
  Transmission Date: 20120403
  Serious: Yes (Hospitalization)
  Sender: FDA-Public Use
  Company Number: JP-B.I. PHARMACEUTICALS,INC./RIDGEFIELD-2011-BP-26369NB

PATIENT
  Age: 76 Year
  Sex: Male

DRUGS (4)
  1. TORSEMIDE [Concomitant]
     Dosage: 4 MG
     Route: 065
  2. PRADAXA [Suspect]
     Dosage: 220 MG
     Route: 048
     Dates: start: 20110323, end: 20111005
  3. SUNRYTHM [Concomitant]
     Dosage: PRN UNSPECIFIED DOSE
     Route: 065
  4. VERAPAMIL HCL [Concomitant]
     Dosage: 80 MG
     Route: 065

REACTIONS (1)
  - CEREBRAL INFARCTION [None]
